FAERS Safety Report 6026648-9 (Version None)
Quarter: 2008Q4

REPORT INFORMATION
  Report Type: 
  Country: None (occurrence: None)
  Receive Date: 20081231
  Receipt Date: 20081216
  Transmission Date: 20090506
  Serious: Yes (Hospitalization)
  Sender: FDA-Public Use
  Company Number: KV200801176

PATIENT
  Age: 72 Year
  Sex: Male
  Weight: 102.9 kg

DRUGS (9)
  1. ISOSORBIDE MONONITRATE [Suspect]
     Indication: ATRIOVENTRICULAR BLOCK
     Dosage: 90 MG, QD (ONE AND 1/2 TABS DAILY), ORAL
     Route: 048
     Dates: start: 19980101, end: 20081024
  2. LEVOTHYROXINE SODIUM [Concomitant]
  3. METFORMIN HCL [Concomitant]
  4. ASPIRIN [Concomitant]
  5. PROBENECID [Concomitant]
  6. NAPROXEN [Concomitant]
  7. LIPITOR [Concomitant]
  8. LISINOPRIL [Concomitant]
  9. PLAVIX [Concomitant]

REACTIONS (3)
  - MYOCARDIAL INFARCTION [None]
  - PRODUCT QUALITY ISSUE [None]
  - VASCULAR GRAFT [None]
